FAERS Safety Report 22006903 (Version 2)
Quarter: 2023Q2

REPORT INFORMATION
  Report Type: Spontaneous
  Country: None (occurrence: ES)
  Receive Date: 20230217
  Receipt Date: 20230516
  Transmission Date: 20230722
  Serious: Yes (Hospitalization)
  Sender: FDA-Public Use
  Company Number: ES-Stallergenes SAS-2138145

PATIENT
  Age: 10 Year
  Sex: Male

DRUGS (1)
  1. ORALAIR [Suspect]
     Active Substance: ANTHOXANTHUM ODORATUM POLLEN\DACTYLIS GLOMERATA POLLEN\LOLIUM PERENNE POLLEN\PHLEUM PRATENSE POLLEN\
     Indication: Seasonal allergy
     Route: 060
     Dates: start: 20230102, end: 20230126

REACTIONS (4)
  - Dysphagia [Recovered/Resolved]
  - Pyrexia [Recovered/Resolved]
  - Odynophagia [Recovering/Resolving]
  - Hypersensitivity [Recovered/Resolved]

NARRATIVE: CASE EVENT DATE: 20230118
